FAERS Safety Report 8192542 (Version 3)
Quarter: 2014Q2

REPORT INFORMATION
  Report Type: Report from Study
  Country: US (occurrence: US)
  Receive Date: 20111021
  Receipt Date: 20140609
  Transmission Date: 20141212
  Serious: Yes (Hospitalization)
  Sender: FDA-Public Use
  Company Number: US-BIOGENIDEC-2011BI039332

PATIENT
  Age: 45 Year
  Sex: Male

DRUGS (3)
  1. AVONEX [Suspect]
     Indication: MULTIPLE SCLEROSIS
     Route: 030
  2. AVONEX [Suspect]
     Indication: MULTIPLE SCLEROSIS
     Route: 030
  3. AVONEX [Suspect]
     Indication: MULTIPLE SCLEROSIS
     Route: 030
     Dates: start: 20040130

REACTIONS (6)
  - Cellulitis [Not Recovered/Not Resolved]
  - Localised infection [Unknown]
  - Injection site hypoaesthesia [Not Recovered/Not Resolved]
  - Scar [Unknown]
  - Multiple sclerosis relapse [Unknown]
  - Influenza like illness [Unknown]
